FAERS Safety Report 9143648 (Version 1)
Quarter: 2013Q1

REPORT INFORMATION
  Report Type: Spontaneous
  Country: FR (occurrence: FR)
  Receive Date: 20130306
  Receipt Date: 20130306
  Transmission Date: 20140127
  Serious: Yes (Hospitalization)
  Sender: FDA-Public Use
  Company Number: FR-PFIZER INC-2013071461

PATIENT
  Age: 72 Year
  Sex: Female

DRUGS (13)
  1. ZITHROMAX [Suspect]
     Indication: LUNG DISORDER
     Dosage: 250 MG, 1X/DAY
     Route: 048
  2. NOVORAPID [Suspect]
     Indication: TYPE 2 DIABETES MELLITUS
     Dosage: 22 IU, 1X/DAY
     Route: 058
     Dates: end: 20120514
  3. LANTUS [Suspect]
     Indication: TYPE 2 DIABETES MELLITUS
     Dosage: 18 IU, 1X/DAY
     Route: 058
     Dates: end: 20120514
  4. HYDROCORTISONE HEMISUCCINATE [Concomitant]
     Dosage: UNK
  5. SPORANOX [Concomitant]
     Dosage: UNK
  6. LASILIX [Concomitant]
     Dosage: 40 MG SCORED TABLET
  7. KARDEGIC [Concomitant]
     Dosage: UNK
  8. DOLIPRANE [Concomitant]
     Dosage: UNK
  9. TRANSIPEG [Concomitant]
     Dosage: UNK
  10. SYMBICORT TURBUHALER ^ASTRAZENECA^ [Concomitant]
     Dosage: UNK
  11. IVABRADINE [Concomitant]
     Dosage: UNK
  12. PERINDOPRIL [Concomitant]
     Dosage: UNK
  13. INEXIUM [Concomitant]
     Dosage: UNK

REACTIONS (4)
  - Hypoglycaemia [Recovered/Resolved]
  - Convulsion [Recovered/Resolved]
  - Grand mal convulsion [Recovered/Resolved]
  - Coma [Recovered/Resolved]
